FAERS Safety Report 7972485-5 (Version None)
Quarter: 2011Q4

REPORT INFORMATION
  Report Type: 
  Country: None (occurrence: None)
  Receive Date: 20111213
  Receipt Date: 20111130
  Transmission Date: 20120403
  Serious: Yes (Hospitalization)
  Sender: FDA-Public Use
  Company Number: ES-SP-2011-11777

PATIENT
  Age: 65 Year
  Sex: Male

DRUGS (2)
  1. IBUPROPHEN [Concomitant]
     Dates: start: 20110309, end: 20110313
  2. IMMUCYST [Suspect]
     Indication: BLADDER CANCER
     Route: 043
     Dates: start: 20100801, end: 20110309

REACTIONS (4)
  - PYREXIA [None]
  - HEPATITIS CHOLESTATIC [None]
  - JAUNDICE [None]
  - URINE COLOUR ABNORMAL [None]
